FAERS Safety Report 7164101-X (Version None)
Quarter: 2010Q4

REPORT INFORMATION
  Report Type: 
  Country: None (occurrence: None)
  Receive Date: 20101215
  Receipt Date: 20101203
  Transmission Date: 20110411
  Serious: Yes (Other)
  Sender: FDA-Public Use
  Company Number: AU-ACTELION-A-CH2010-41728

PATIENT
  Sex: Male
  Weight: 40 kg

DRUGS (5)
  1. TRACLEER [Suspect]
     Indication: PULMONARY ARTERIAL HYPERTENSION
     Dosage: 62.5 MG, BID
     Route: 048
     Dates: start: 20100302
  2. TRACLEER [Suspect]
     Dosage: 31.25 MG, BID
     Route: 048
     Dates: start: 20100120, end: 20100301
  3. SILDENAFIL [Concomitant]
  4. WARFARIN SODIUM [Concomitant]
  5. FLOLAN [Concomitant]

REACTIONS (5)
  - CONDITION AGGRAVATED [None]
  - EXERCISE TOLERANCE DECREASED [None]
  - PULMONARY ARTERIAL HYPERTENSION [None]
  - RIGHT VENTRICULAR FAILURE [None]
  - SYNCOPE [None]
